FAERS Safety Report 8227308-6 (Version None)
Quarter: 2012Q1

REPORT INFORMATION
  Report Type: 
  Country: None (occurrence: None)
  Receive Date: 20120322
  Receipt Date: 20120316
  Transmission Date: 20120608
  Serious: Yes (Other)
  Sender: FDA-Public Use
  Company Number: PHHY2012BR023716

PATIENT
  Sex: Male

DRUGS (1)
  1. TRILEPTAL [Suspect]
     Indication: CONVULSION
     Dosage: 60 MG/ML, 1 DOSE AT NIGHT
     Route: 048

REACTIONS (7)
  - TACHYCARDIA [None]
  - PALPITATIONS [None]
  - DYSPNOEA [None]
  - ATTENTION DEFICIT/HYPERACTIVITY DISORDER [None]
  - DISTURBANCE IN ATTENTION [None]
  - ANXIETY [None]
  - PSYCHOMOTOR HYPERACTIVITY [None]
